FAERS Safety Report 9067635 (Version 1)
Quarter: 2013Q1

REPORT INFORMATION
  Report Type: Spontaneous
  Country: EC (occurrence: EC)
  Receive Date: 20130206
  Receipt Date: 20130206
  Transmission Date: 20140127
  Serious: Yes (Death, Hospitalization)
  Sender: FDA-Public Use
  Company Number: EC-PFIZER INC-2013049454

PATIENT
  Age: 89 Year
  Sex: Female

DRUGS (2)
  1. NORVASC [Suspect]
     Indication: HYPERTENSION
     Dosage: 5 MG, 1X/DAY
     Route: 048
     Dates: start: 2005
  2. ZOLOFT [Suspect]
     Indication: DEMENTIA ALZHEIMER^S TYPE
     Dosage: 50 MG, 1X/DAY
     Route: 048
     Dates: start: 2005

REACTIONS (2)
  - Pneumonia [Fatal]
  - Fall [Unknown]
